FAERS Safety Report 13766913 (Version 1)
Quarter: 2017Q3

REPORT INFORMATION
  Report Type: Spontaneous
  Country: US (occurrence: US)
  Receive Date: 20170719
  Receipt Date: 20170719
  Transmission Date: 20171127
  Serious: Yes (Other)
  Sender: FDA-Public Use
  Company Number: None

PATIENT
  Age: 19 Year
  Sex: Male
  Weight: 83.7 kg

DRUGS (4)
  1. VICKS NYQUIL [Suspect]
     Active Substance: ACETAMINOPHEN\DEXTROMETHORPHAN HYDROBROMIDE\DOXYLAMINE SUCCINATE
     Indication: NASOPHARYNGITIS
     Dosage: ?          QUANTITY:2 TABLESPOON(S);?
     Route: 048
     Dates: start: 20170628, end: 20170629
  2. MULTIVITAMINS [Concomitant]
     Active Substance: VITAMINS
  3. VICKS NYQUIL [Suspect]
     Active Substance: ACETAMINOPHEN\DEXTROMETHORPHAN HYDROBROMIDE\DOXYLAMINE SUCCINATE
     Indication: INFLUENZA
     Dosage: ?          QUANTITY:2 TABLESPOON(S);?
     Route: 048
     Dates: start: 20170628, end: 20170629
  4. FISH OIL [Concomitant]
     Active Substance: FISH OIL

REACTIONS (2)
  - Vision blurred [None]
  - Metamorphopsia [None]

NARRATIVE: CASE EVENT DATE: 20170630
